FAERS Safety Report 21730821 (Version 1)
Quarter: 2022Q4

REPORT INFORMATION
  Report Type: Spontaneous
  Country: DE (occurrence: DE)
  Receive Date: 20221215
  Receipt Date: 20221215
  Transmission Date: 20230112
  Serious: Yes (Hospitalization, Other)
  Sender: FDA-Public Use
  Company Number: DE-002147023-NVSC2022DE281700

PATIENT
  Age: 74 Year
  Sex: Male

DRUGS (21)
  1. DABIGATRAN [Suspect]
     Active Substance: DABIGATRAN
     Indication: Product used for unknown indication
     Route: 048
     Dates: start: 20130312
  2. DABIGATRAN [Suspect]
     Active Substance: DABIGATRAN
     Route: 048
  3. DABIGATRAN [Suspect]
     Active Substance: DABIGATRAN
     Route: 048
     Dates: start: 201303
  4. SIMVASTATIN [Suspect]
     Active Substance: SIMVASTATIN
     Indication: Product used for unknown indication
     Dosage: UNK,
  5. SIMVASTATIN [Suspect]
     Active Substance: SIMVASTATIN
     Dosage: UNK UNK, (40)
  6. SIMVASTATIN [Suspect]
     Active Substance: SIMVASTATIN
     Dosage: 40 MG (0-0-0-1/2)
  7. BISOPROLOL [Suspect]
     Active Substance: BISOPROLOL
     Indication: Product used for unknown indication
  8. BISOPROLOL [Suspect]
     Active Substance: BISOPROLOL
     Dosage: UNK (?-0-0)
  9. FEBUXOSTAT [Suspect]
     Active Substance: FEBUXOSTAT
     Indication: Product used for unknown indication
  10. FEBUXOSTAT [Suspect]
     Active Substance: FEBUXOSTAT
     Dosage: QD (0-0-1/2)
  11. VOTRIENT [Suspect]
     Active Substance: PAZOPANIB HYDROCHLORIDE
     Indication: Renal cell carcinoma
     Route: 065
     Dates: start: 2017
  12. RAMIPRIL [Suspect]
     Active Substance: RAMIPRIL
     Indication: Product used for unknown indication
     Route: 065
  13. RAMIPRIL [Suspect]
     Active Substance: RAMIPRIL
     Dosage: UNK UNK, QD (PLUS 5/25, 1-0-0)
  14. RAMIPRIL [Suspect]
     Active Substance: RAMIPRIL
     Dosage: UNK, BID (PLUS 5/25, 5/5 MG, -1-0-1-0)
  15. RAMIPRIL [Suspect]
     Active Substance: RAMIPRIL
  16. METAMIZOLE SODIUM [Suspect]
     Active Substance: METAMIZOLE SODIUM
     Indication: Pain
     Route: 065
  17. METAMIZOLE SODIUM [Suspect]
     Active Substance: METAMIZOLE SODIUM
     Dosage: UNK (1 G TO 4X DAILY AS NEEDED)
     Route: 065
  18. ENOXAPARIN SODIUM [Suspect]
     Active Substance: ENOXAPARIN SODIUM
     Indication: Product used for unknown indication
     Dosage: 0.7 ML, QD (0.6, 0-0-1-0)
  19. ENOXAPARIN SODIUM [Suspect]
     Active Substance: ENOXAPARIN SODIUM
     Dosage: UNK, BID (0.6, 1-0-1)
  20. FEBUXOSTAT [Suspect]
     Active Substance: FEBUXOSTAT
     Indication: Product used for unknown indication
     Dosage: UNK (0-0-0.5 TABLETS)
     Route: 065
  21. AMLODIPINE [Suspect]
     Active Substance: AMLODIPINE BESYLATE
     Indication: Product used for unknown indication
     Dosage: UNK UNK, QD (1-0-0)
     Route: 065

REACTIONS (55)
  - Cerebrovascular accident [Unknown]
  - Metastases to soft tissue [Recovering/Resolving]
  - Osteochondrosis [Unknown]
  - Polycystic liver disease [Unknown]
  - Ascites [Unknown]
  - Splenic necrosis [Unknown]
  - Chronic kidney disease [Unknown]
  - Transient ischaemic attack [Unknown]
  - Atrial fibrillation [Unknown]
  - Aortic arteriosclerosis [Unknown]
  - Red blood cell abnormality [Recovered/Resolved]
  - Prostatic specific antigen abnormal [Unknown]
  - Blood bilirubin abnormal [Recovered/Resolved]
  - Blood glucose abnormal [Unknown]
  - Activated partial thromboplastin time abnormal [Unknown]
  - Platelet count abnormal [Recovered/Resolved]
  - Haemoglobin abnormal [Recovered/Resolved]
  - C-reactive protein increased [Recovering/Resolving]
  - Haematocrit abnormal [Recovered/Resolved]
  - Urinary sediment present [Unknown]
  - Prothrombin time abnormal [Recovered/Resolved]
  - International normalised ratio abnormal [Recovered/Resolved]
  - Haemoglobin urine present [Unknown]
  - Red blood cells urine positive [Unknown]
  - White blood cells urine positive [Unknown]
  - Platelet count abnormal [Recovered/Resolved]
  - Red blood cell count decreased [Recovering/Resolving]
  - International normalised ratio abnormal [Unknown]
  - Haematocrit decreased [Recovered/Resolved]
  - Haemoglobin decreased [Recovered/Resolved]
  - Prothrombin time abnormal [Unknown]
  - Mean cell haemoglobin increased [Not Recovered/Not Resolved]
  - Mean cell volume increased [Not Recovered/Not Resolved]
  - Benign prostatic hyperplasia [Unknown]
  - Spinal osteoarthritis [Unknown]
  - Pain [Unknown]
  - Osteolysis [Unknown]
  - Hiatus hernia [Unknown]
  - Hypoaesthesia [Unknown]
  - Lymphadenopathy [Unknown]
  - Scoliosis [Unknown]
  - Lung opacity [Unknown]
  - Drug ineffective [Unknown]
  - Hepatic lesion [Unknown]
  - Splenic lesion [Unknown]
  - Swelling [Unknown]
  - Sensory disturbance [Unknown]
  - Hepatic cyst [Unknown]
  - Lordosis [Unknown]
  - Diarrhoea [Unknown]
  - Pleural effusion [Unknown]
  - Back pain [Unknown]
  - Hypertension [Unknown]
  - Splenic cyst [Unknown]
  - Osteoma [Unknown]

NARRATIVE: CASE EVENT DATE: 20120101
